FAERS Safety Report 5411803-9 (Version None)
Quarter: 2007Q3

REPORT INFORMATION
  Report Type: 
  Country: None (occurrence: None)
  Receive Date: 20070713
  Receipt Date: 20070316
  Transmission Date: 20080115
  Serious: No
  Sender: FDA-Public Use
  Company Number: 2007SP000974

PATIENT
  Age: 49 Year
  Sex: Female

DRUGS (8)
  1. LUNESTA [Suspect]
     Indication: INSOMNIA
     Dosage: 3 MG;ORAL ; 6 MG;ORAL
     Route: 048
     Dates: start: 20060101, end: 20070301
  2. LUNESTA [Suspect]
     Indication: INSOMNIA
     Dosage: 3 MG;ORAL ; 6 MG;ORAL
     Route: 048
     Dates: start: 20050301
  3. NEURONTIN [Concomitant]
  4. LYRICA [Concomitant]
  5. CYMBALTA [Concomitant]
  6. VALIUM [Concomitant]
  7. HEPARIN [Concomitant]
  8. ESTRADIOL [Concomitant]

REACTIONS (2)
  - AMNESIA [None]
  - INSOMNIA [None]
